FAERS Safety Report 4554223-1 (Version None)
Quarter: 2004Q4

REPORT INFORMATION
  Report Type: 
  Country: None (occurrence: None)
  Receive Date: 20041227
  Receipt Date: 20041122
  Transmission Date: 20050328
  Serious: No
  Sender: FDA-Public Use
  Company Number: 04P-163-0281178-00

PATIENT
  Age: 73 Year
  Sex: Female
  Weight: 71.6683 kg

DRUGS (5)
  1. HUMIRA [Suspect]
     Indication: RHEUMATOID ARTHRITIS
     Dosage: 40 MG, 1 IN 2 WK, SUBCUTANEOUS
     Route: 058
     Dates: start: 20030101
  2. ASCORBIC ACID [Concomitant]
  3. ESTROGENS CONJUGATED [Concomitant]
  4. CALCIUM GLUCONATE [Concomitant]
  5. CETIRIZINE HCL [Concomitant]

REACTIONS (4)
  - ATRIAL FIBRILLATION [None]
  - HAEMORRHOIDAL HAEMORRHAGE [None]
  - HEPATIC ENZYME INCREASED [None]
  - SALMONELLOSIS [None]
